FAERS Safety Report 12392183 (Version 1)
Quarter: 2016Q2

REPORT INFORMATION
  Report Type: Spontaneous
  Country: US (occurrence: US)
  Receive Date: 20160523
  Receipt Date: 20160523
  Transmission Date: 20160815
  Serious: No
  Sender: FDA-Public Use
  Company Number: US-TEVA-568797USA

PATIENT
  Age: 5 Year
  Sex: Female

DRUGS (1)
  1. PENICILLIN V POTASSIUM. [Suspect]
     Active Substance: PENICILLIN V POTASSIUM
     Indication: TONSILLECTOMY
     Dosage: 250 MG/5 ML
     Route: 048
     Dates: start: 20150526

REACTIONS (2)
  - Pyrexia [Unknown]
  - Incorrect product storage [Unknown]

NARRATIVE: CASE EVENT DATE: 20150526
